FAERS Safety Report 15461319 (Version 3)
Quarter: 2018Q4

REPORT INFORMATION
  Report Type: Spontaneous
  Country: US (occurrence: US)
  Receive Date: 20181003
  Receipt Date: 20181220
  Transmission Date: 20190204
  Serious: Yes (Other)
  Sender: FDA-Public Use
  Company Number: US-AVEDRO-AVE-2018-0219-AE

PATIENT
  Age: 17 Year
  Sex: Male

DRUGS (2)
  1. PHOTREXA VISCOUS [Suspect]
     Active Substance: RIBOFLAVIN 5^-PHOSPHATE SODIUM
     Indication: KERATOCONUS
     Dosage: 1 DROP EVERY 2 MINUTES FOR 30 MINUTES
     Route: 047
     Dates: start: 20180905, end: 20180905
  2. KXL SYSTEM [Suspect]
     Active Substance: DEVICE
     Indication: KERATOCONUS
     Route: 047
     Dates: start: 20180905, end: 20180905

REACTIONS (5)
  - Ulcerative keratitis [Unknown]
  - Keratitis bacterial [Unknown]
  - Corneal transplant [Recovered/Resolved]
  - Eye pain [Unknown]
  - Corneal opacity [Unknown]

NARRATIVE: CASE EVENT DATE: 201809
